FAERS Safety Report 12468816 (Version 1)
Quarter: 2016Q2

REPORT INFORMATION
  Report Type: Spontaneous
  Country: CL (occurrence: CL)
  Receive Date: 20160615
  Receipt Date: 20160615
  Transmission Date: 20160815
  Serious: Yes (Hospitalization)
  Sender: FDA-Public Use
  Company Number: CL-WATSON-2016-12587

PATIENT
  Age: 57 Year
  Sex: Female

DRUGS (1)
  1. VANCOMYCIN (UNKNOWN) [Suspect]
     Active Substance: VANCOMYCIN
     Indication: CLOSTRIDIUM DIFFICILE INFECTION
     Dosage: 125 MG, Q6H
     Route: 048
     Dates: start: 20140718, end: 20140731

REACTIONS (1)
  - Clostridium difficile infection [Recovered/Resolved]

NARRATIVE: CASE EVENT DATE: 20140804
